FAERS Safety Report 22926546 (Version 4)
Quarter: 2023Q4

REPORT INFORMATION
  Report Type: Spontaneous
  Country: US (occurrence: US)
  Receive Date: 20230909
  Receipt Date: 20231224
  Transmission Date: 20240109
  Serious: No
  Sender: FDA-Public Use
  Company Number: US-TRAVERE-2023TVT00399

PATIENT
  Age: 58 Year
  Sex: Female

DRUGS (2)
  1. FILSPARI [Suspect]
     Active Substance: SPARSENTAN
     Indication: Haematuria
     Dosage: 400 MG
     Route: 048
     Dates: start: 202307
  2. FILSPARI [Suspect]
     Active Substance: SPARSENTAN
     Indication: IgA nephropathy
     Dosage: 400 MG
     Route: 048
     Dates: start: 20230726

REACTIONS (7)
  - Dermatitis acneiform [None]
  - Pigmentation disorder [Unknown]
  - Abdominal discomfort [Unknown]
  - Injection site bruising [Unknown]
  - Injection site nodule [Recovering/Resolving]
  - Inappropriate schedule of product administration [Unknown]
  - Rash [Unknown]

NARRATIVE: CASE EVENT DATE: 20230726
